FAERS Safety Report 14337925 (Version 4)
Quarter: 2018Q1

REPORT INFORMATION
  Report Type: Spontaneous
  Country: JP (occurrence: JP)
  Receive Date: 20171229
  Receipt Date: 20180314
  Transmission Date: 20180509
  Serious: Yes (Hospitalization)
  Sender: FDA-Public Use
  Company Number: JP-ALLERGAN-1773989US

PATIENT
  Age: 71 Year
  Sex: Male

DRUGS (4)
  1. SILODOSIN - BP [Suspect]
     Active Substance: SILODOSIN
     Indication: BENIGN PROSTATIC HYPERPLASIA
     Dosage: 2 MG, BID
     Route: 048
     Dates: start: 20160404, end: 20161002
  2. ARICEPT [Suspect]
     Active Substance: DONEPEZIL HYDROCHLORIDE
     Indication: PRODUCT USED FOR UNKNOWN INDICATION
     Dosage: UNK
     Route: 048
     Dates: end: 201710
  3. SILODOSIN - BP [Suspect]
     Active Substance: SILODOSIN
     Indication: BLADDER OUTLET OBSTRUCTION
     Dosage: 4 MG, BID
     Route: 048
     Dates: start: 20161002, end: 20171219
  4. SILODOSIN - BP [Suspect]
     Active Substance: SILODOSIN
     Indication: DYSURIA
     Dosage: 2 MG, BID
     Route: 048
     Dates: start: 20171219

REACTIONS (4)
  - Seizure [Recovered/Resolved]
  - Off label use [Unknown]
  - Loss of consciousness [Recovered/Resolved]
  - Contraindicated drug prescribed [Unknown]

NARRATIVE: CASE EVENT DATE: 201604
